FAERS Safety Report 4263451-4 (Version None)
Quarter: 2004Q1

REPORT INFORMATION
  Report Type: 
  Country: None (occurrence: None)
  Receive Date: 20040104
  Receipt Date: 20040104
  Transmission Date: 20041129
  Serious: No
  Sender: FDA-Public Use
  Company Number: None

PATIENT
  Age: 52 Year
  Sex: Female
  Weight: 104.3273 kg

DRUGS (4)
  1. SEROQUEL [Suspect]
     Indication: MAJOR DEPRESSION
     Dosage: 25 MG Q HS ORAL
     Route: 048
     Dates: start: 20031231, end: 20031231
  2. SEROQUEL [Suspect]
     Indication: POST-TRAUMATIC STRESS DISORDER
     Dosage: 25 MG Q HS ORAL
     Route: 048
     Dates: start: 20031231, end: 20031231
  3. DIURETIC [Concomitant]
  4. CA AND MG SUPPLEMENT [Concomitant]

REACTIONS (4)
  - BITE [None]
  - CONVULSION [None]
  - HOMICIDAL IDEATION [None]
  - SEDATION [None]
